FAERS Safety Report 7155067-7 (Version None)
Quarter: 2010Q4

REPORT INFORMATION
  Report Type: 
  Country: None (occurrence: None)
  Receive Date: 20101214
  Receipt Date: 20100118
  Transmission Date: 20110411
  Serious: Yes (Other)
  Sender: FDA-Public Use
  Company Number: US-AMGEN-QUU372155

PATIENT

DRUGS (2)
  1. ENBREL [Suspect]
     Indication: PSORIASIS
     Dosage: 50 MG, 2 TIMES/WK
     Route: 058
     Dates: start: 20050201, end: 20070201
  2. METHOTREXATE [Concomitant]
     Dosage: 50 MG, UNK
     Dates: start: 20050201, end: 20070201

REACTIONS (1)
  - SQUAMOUS CELL CARCINOMA [None]
